FAERS Safety Report 19796030 (Version 1)
Quarter: 2021Q3

REPORT INFORMATION
  Report Type: Spontaneous
  Country: US (occurrence: US)
  Receive Date: 20210901
  Receipt Date: 20210901
  Transmission Date: 20211014
  Serious: Yes (Hospitalization)
  Sender: FDA-Public Use
  Company Number: None

PATIENT
  Age: 60 Year
  Sex: Female

DRUGS (6)
  1. LEVEMIR [Concomitant]
     Active Substance: INSULIN DETEMIR
  2. REPATHA [Suspect]
     Active Substance: EVOLOCUMAB
     Indication: TYPE V HYPERLIPIDAEMIA
     Route: 058
     Dates: start: 20180807
  3. SPIRIVA HANDIHLR [Concomitant]
  4. CLOPIDOGREL [Concomitant]
     Active Substance: CLOPIDOGREL BISULFATE
  5. NOVOLOG [Concomitant]
     Active Substance: INSULIN ASPART
  6. RANEXA [Concomitant]
     Active Substance: RANOLAZINE

REACTIONS (2)
  - Leg amputation [None]
  - Therapy interrupted [None]

NARRATIVE: CASE EVENT DATE: 20210805
